FAERS Safety Report 7154293-0 (Version None)
Quarter: 2010Q4

REPORT INFORMATION
  Report Type: 
  Country: None (occurrence: None)
  Receive Date: 20101213
  Receipt Date: 20101203
  Transmission Date: 20110411
  Serious: Yes (Other)
  Sender: FDA-Public Use
  Company Number: GR-BAXTER-2010BH029538

PATIENT

DRUGS (10)
  1. IFOSFAMIDE [Suspect]
     Indication: GERM CELL CANCER
     Route: 042
  2. MESNA [Suspect]
     Indication: GERM CELL CANCER
     Route: 042
  3. METHOTREXATE [Suspect]
     Indication: GERM CELL CANCER
     Route: 042
  4. FOLINIC ACID [Suspect]
     Indication: GERM CELL CANCER
     Route: 065
  5. PACLITAXEL [Suspect]
     Indication: GERM CELL CANCER
     Route: 042
  6. CISPLATIN [Suspect]
     Indication: GERM CELL CANCER
     Route: 042
  7. DEXAMETHASONE [Suspect]
     Indication: PROPHYLAXIS
     Route: 065
  8. RANITIDINE [Suspect]
     Indication: PROPHYLAXIS
     Route: 042
  9. DIPHENHYDRAMINE [Suspect]
     Indication: PROPHYLAXIS
     Route: 048
  10. GRANULOCYTE COLONY STIMULATING FACTOR [Suspect]
     Indication: PROPHYLAXIS
     Route: 058

REACTIONS (1)
  - OTOTOXICITY [None]
